FAERS Safety Report 8914182 (Version 1)
Quarter: 2012Q4

REPORT INFORMATION
  Report Type: Spontaneous
  Country: US (occurrence: None)
  Receive Date: 20121114
  Receipt Date: 20121114
  Transmission Date: 20130627
  Serious: Yes (Hospitalization)
  Sender: FDA-Public Use
  Company Number: UTC-025147

PATIENT
  Age: 66 Year
  Sex: Male
  Weight: 66.36 kg

DRUGS (3)
  1. REMODULIN (10 MILLIGRAM/MILLILITERS, INJECTION FOR INFUSION) (TREPROSTINIL SODIUM) [Suspect]
     Indication: PULMONARY HYPERTENSION
     Dosage: 115.2 ug/kg (0.08 ug/kg, 1 in 1 min), subcutaneous
     Dates: start: 20111206
  2. ADCIRCA [Suspect]
  3. OXYGEN [Concomitant]

REACTIONS (1)
  - Infusion site infection [None]
